FAERS Safety Report 19714285 (Version 1)
Quarter: 2021Q3

REPORT INFORMATION
  Report Type: Spontaneous
  Country: US (occurrence: US)
  Receive Date: 20210818
  Receipt Date: 20210818
  Transmission Date: 20211014
  Serious: No
  Sender: FDA-Public Use
  Company Number: US-TEVA-2021-US-1942176

PATIENT
  Age: 77 Year
  Sex: Female
  Weight: 54.43 kg

DRUGS (5)
  1. BUSPIRONE [Concomitant]
     Active Substance: BUSPIRONE HYDROCHLORIDE
  2. AUSTEDO [Suspect]
     Active Substance: DEUTETRABENAZINE
     Indication: HUNTINGTON^S DISEASE
     Dosage: 30 MILLIGRAM DAILY;
     Route: 065
     Dates: start: 2018
  3. CARBIDOPA?LEVODOPA [Concomitant]
     Active Substance: CARBIDOPA\LEVODOPA
  4. GINKGO BILOBA [Concomitant]
     Active Substance: GINKGO
  5. VITAMIN B3 [Concomitant]
     Active Substance: NIACIN

REACTIONS (2)
  - Movement disorder [Unknown]
  - Cognitive disorder [Unknown]
